FAERS Safety Report 6314497-3 (Version None)
Quarter: 2009Q3

REPORT INFORMATION
  Report Type: 
  Country: None (occurrence: None)
  Receive Date: 20090817
  Receipt Date: 20090817
  Transmission Date: 20100115
  Serious: Yes (Hospitalization, Disabling)
  Sender: FDA-Public Use
  Company Number: None

PATIENT
  Age: 47 Year
  Sex: Female
  Weight: 81.1939 kg

DRUGS (2)
  1. LEVAQUIN [Suspect]
     Indication: ASTHMA
     Dosage: 1 TAB QD PO
     Route: 048
     Dates: start: 20090514, end: 20090521
  2. LEVAQUIN [Suspect]
     Indication: PNEUMONITIS
     Dosage: 1 TAB QD PO
     Route: 048
     Dates: start: 20090514, end: 20090521

REACTIONS (3)
  - CONTUSION [None]
  - FALL [None]
  - TENDON RUPTURE [None]
